FAERS Safety Report 6326976-3 (Version None)
Quarter: 2009Q3

REPORT INFORMATION
  Report Type: 
  Country: None (occurrence: None)
  Receive Date: 20090825
  Receipt Date: 20090820
  Transmission Date: 20100115
  Serious: Yes (Hospitalization)
  Sender: FDA-Public Use
  Company Number: US-ASTRAZENECA-2009SE08955

PATIENT
  Age: 55 Year
  Sex: Male

DRUGS (1)
  1. SYMBICORT [Suspect]
     Route: 055

REACTIONS (1)
  - SURGERY [None]
